FAERS Safety Report 14510157 (Version 2)
Quarter: 2018Q1

REPORT INFORMATION
  Report Type: Spontaneous
  Country: DE (occurrence: DE)
  Receive Date: 20180209
  Receipt Date: 20180221
  Transmission Date: 20180509
  Serious: Yes (Other)
  Sender: FDA-Public Use
  Company Number: DE-JNJFOC-20180211882

PATIENT
  Sex: Female

DRUGS (2)
  1. TRAMADOL-RATIOPHARM 100 MG RETARDTABLETTEN [Suspect]
     Active Substance: TRAMADOL
     Indication: PAIN
     Route: 048
     Dates: start: 201607, end: 201611
  2. TRAMADOL HYDROCHLORIDE. [Suspect]
     Active Substance: TRAMADOL HYDROCHLORIDE
     Indication: PAIN
     Route: 048

REACTIONS (2)
  - Breast cancer [Unknown]
  - Tumour marker increased [Unknown]
